FAERS Safety Report 5158173-1 (Version None)
Quarter: 2006Q4

REPORT INFORMATION
  Report Type: 
  Country: None (occurrence: None)
  Receive Date: 20061120
  Receipt Date: 20061120
  Transmission Date: 20070319
  Serious: Yes (Hospitalization)
  Sender: FDA-Public Use
  Company Number: None

PATIENT
  Sex: Female
  Weight: 60 kg

DRUGS (3)
  1. CYCLOPHOSPHAMIDE [Suspect]
     Dosage: 2400 MG
     Dates: end: 20060914
  2. DOXORUBICIN HYDROCHLORIDE [Suspect]
     Dosage: 240 MG
     Dates: end: 20060914
  3. TAXOL [Suspect]
     Dosage: 175 MG
     Dates: end: 20060928

REACTIONS (5)
  - HEPATIC STEATOSIS [None]
  - HEPATITIS ACUTE [None]
  - HEPATOCELLULAR DAMAGE [None]
  - LIVER TRANSPLANT [None]
  - PLATELET COUNT DECREASED [None]
